FAERS Safety Report 9271009 (Version 3)
Quarter: 2013Q3

REPORT INFORMATION
  Report Type: Spontaneous
  Country: DE (occurrence: DE)
  Receive Date: 20130506
  Receipt Date: 20130806
  Transmission Date: 20140515
  Serious: Yes (Hospitalization)
  Sender: FDA-Public Use
  Company Number: DE-JNJFOC-20130416586

PATIENT
  Age: 62 Year
  Sex: Male

DRUGS (14)
  1. XARELTO [Suspect]
     Indication: ATRIAL FIBRILLATION
     Route: 048
  2. XARELTO [Suspect]
     Indication: CEREBROVASCULAR ACCIDENT PROPHYLAXIS
     Route: 048
  3. SIMVAHEXAL [Concomitant]
     Route: 065
  4. AMLODIPINE [Concomitant]
     Route: 065
  5. FUROSEMID [Concomitant]
     Route: 065
  6. PANTOPRAZOLE [Concomitant]
     Route: 065
  7. ASS [Concomitant]
     Route: 065
  8. DELIX [Concomitant]
     Route: 065
  9. TOREM [Concomitant]
     Route: 065
  10. SPIRONOLACTON [Concomitant]
     Route: 065
  11. PARACETAMOL [Concomitant]
     Route: 065
  12. OXYCODONE [Concomitant]
     Route: 065
  13. ACTRAPHANE [Concomitant]
     Route: 065
  14. MARCUMAR [Concomitant]
     Route: 065

REACTIONS (3)
  - Peripheral embolism [Unknown]
  - Iliac artery embolism [Unknown]
  - Femoral artery embolism [Unknown]
